FAERS Safety Report 16131938 (Version 1)
Quarter: 2019Q1

REPORT INFORMATION
  Report Type: Spontaneous
  Country: CN (occurrence: CN)
  Receive Date: 20190329
  Receipt Date: 20190329
  Transmission Date: 20190418
  Serious: Yes (Other)
  Sender: FDA-Public Use
  Company Number: CN-BAXTER-2019BAX005992

PATIENT
  Age: 66 Year
  Sex: Female
  Weight: 62 kg

DRUGS (12)
  1. ENDOXAN [Suspect]
     Active Substance: CYCLOPHOSPHAMIDE
     Dosage: DOSAGE FORM: INJECTION, THIRD CYCLE, CYCLOPHOSPHAMIDE FOR INJECTION (ENDOXAN CTX) 960 MG + SODIUM CH
     Route: 042
     Dates: start: 20190128, end: 20190128
  2. 0.9% SODIUM CHLORIDE INJECTION [Suspect]
     Active Substance: SODIUM CHLORIDE
     Dosage: THIRD CYCLE, CYCLOPHOSPHAMIDE FOR INJECTION (ENDOXAN CTX) 960 MG + SODIUM CHLORIDE 40 ML
     Route: 042
     Dates: start: 20190128, end: 20190128
  3. ENDOXAN [Suspect]
     Active Substance: CYCLOPHOSPHAMIDE
     Indication: BREAST CANCER FEMALE
     Dosage: DOSAGE FORM: INJECTION, FIRST AND SECOND CYCLE, CYCLOPHOSPHAMIDE FOR INJECTION (ENDOXAN CTX) + SODIU
     Route: 042
  4. 0.9% SODIUM CHLORIDE INJECTION [Suspect]
     Active Substance: SODIUM CHLORIDE
     Dosage: FIRST AND SECOND CYCLE, EPIRUBICIN HYDROCHLORIDE FOR INJECTION (PHARMORUBICIN) + SODIUM CHLORIDE
     Route: 041
  5. ENDOXAN [Suspect]
     Active Substance: CYCLOPHOSPHAMIDE
     Dosage: DOSAGE FORM: INJECTION, DOSE RE-INTRODUCED, CYCLOPHOSPHAMIDE FOR INJECTION (ENDOXAN CTX) + SODIUM CH
     Route: 042
  6. PHARMORUBICIN [Suspect]
     Active Substance: EPIRUBICIN
     Dosage: THIRD CYCLE, EPIRUBICIN HYDROCHLORIDE FOR INJECTION (PHARMORUBICIN) 136 MG + SODIUM CHLORIDE 100 ML
     Route: 041
     Dates: start: 20190128, end: 20190128
  7. 0.9% SODIUM CHLORIDE INJECTION [Suspect]
     Active Substance: SODIUM CHLORIDE
     Dosage: DOSE RE-INTRODUCED, EPIRUBICIN HYDROCHLORIDE FOR INJECTION (PHARMORUBICIN) + SODIUM CHLORIDE
     Route: 041
  8. PHARMORUBICIN [Suspect]
     Active Substance: EPIRUBICIN
     Dosage: DOSAGE FORM: POWDER INJECTION, DOSE RE-INTRODUCED, EPIRUBICIN HYDROCHLORIDE FOR INJECTION (PHARMORUB
     Route: 041
  9. 0.9% SODIUM CHLORIDE INJECTION [Suspect]
     Active Substance: SODIUM CHLORIDE
     Dosage: THIRD CYCLE, EPIRUBICIN HYDROCHLORIDE FOR INJECTION (PHARMORUBICIN) 136 MG + SODIUM CHLORIDE 100 ML
     Route: 041
     Dates: start: 20190128, end: 20190128
  10. 0.9% SODIUM CHLORIDE INJECTION [Suspect]
     Active Substance: SODIUM CHLORIDE
     Dosage: DOSE RE-INTRODUCED, CYCLOPHOSPHAMIDE FOR INJECTION (ENDOXAN CTX) + SODIUM CHLORIDE
     Route: 042
  11. PHARMORUBICIN [Suspect]
     Active Substance: EPIRUBICIN
     Indication: BREAST CANCER FEMALE
     Dosage: FIRST AND SECOND CYCLE, EPIRUBICIN HYDROCHLORIDE FOR INJECTION (PHARMORUBICIN) + SODIUM CHLORIDE
     Route: 041
  12. 0.9% SODIUM CHLORIDE INJECTION [Suspect]
     Active Substance: SODIUM CHLORIDE
     Indication: MEDICATION DILUTION
     Dosage: FIRST AND SECOND CYCLE, CYCLOPHOSPHAMIDE FOR INJECTION (ENDOXAN CTX) + SODIUM CHLORIDE
     Route: 042

REACTIONS (1)
  - Agranulocytosis [Recovered/Resolved]

NARRATIVE: CASE EVENT DATE: 20190211
